FAERS Safety Report 24313531 (Version 1)
Quarter: 2024Q3

REPORT INFORMATION
  Report Type: Spontaneous
  Country: CN (occurrence: CN)
  Receive Date: 20240912
  Receipt Date: 20240912
  Transmission Date: 20241016
  Serious: Yes (Other)
  Sender: PURDUE
  Company Number: CN-NAPPMUNDI-GBR-2024-0119591

PATIENT
  Age: 56 Year
  Sex: Female
  Weight: 56 kg

DRUGS (1)
  1. OXYCODONE HYDROCHLORIDE [Suspect]
     Active Substance: OXYCODONE HYDROCHLORIDE
     Indication: Analgesic therapy
     Dosage: 0.1 GRAM, BID
     Route: 048
     Dates: start: 20240714, end: 20240719

REACTIONS (6)
  - Dizziness [Recovering/Resolving]
  - Chest discomfort [Recovering/Resolving]
  - Tachypnoea [Recovering/Resolving]
  - Vomiting [Recovering/Resolving]
  - Palpitations [Recovering/Resolving]
  - Abdominal tenderness [Recovering/Resolving]

NARRATIVE: CASE EVENT DATE: 20240101
